FAERS Safety Report 12737541 (Version 1)
Quarter: 2016Q3

REPORT INFORMATION
  Report Type: Spontaneous
  Country: AU (occurrence: AU)
  Receive Date: 20160912
  Receipt Date: 20160912
  Transmission Date: 20161109
  Serious: Yes (Other)
  Sender: FDA-Public Use
  Company Number: AU-APOTEX-2016AP011486

PATIENT
  Age: 38 Year
  Sex: Female

DRUGS (1)
  1. APO-DULOXETINE [Suspect]
     Active Substance: DULOXETINE
     Indication: DEPRESSION
     Dosage: 2 DF A DAY
     Route: 065

REACTIONS (2)
  - Self-injurious ideation [Unknown]
  - Withdrawal syndrome [Unknown]
